FAERS Safety Report 16719671 (Version 1)
Quarter: 2019Q3

REPORT INFORMATION
  Report Type: Spontaneous
  Country: US (occurrence: US)
  Receive Date: 20190820
  Receipt Date: 20190820
  Transmission Date: 20191005
  Serious: No
  Sender: FDA-Public Use
  Company Number: US-TEVA-2019-US-1096242

PATIENT

DRUGS (1)
  1. QVAR REDIHALER [Suspect]
     Active Substance: BECLOMETHASONE DIPROPIONATE
     Indication: ASTHMA

REACTIONS (6)
  - Insomnia [Unknown]
  - Wheezing [Unknown]
  - Cough [Unknown]
  - Myalgia [Recovered/Resolved]
  - Device malfunction [Unknown]
  - Product substitution issue [Unknown]
